FAERS Safety Report 15538688 (Version 1)
Quarter: 2018Q4

REPORT INFORMATION
  Report Type: Spontaneous
  Country: US (occurrence: US)
  Receive Date: 20181022
  Receipt Date: 20181022
  Transmission Date: 20190205
  Serious: No
  Sender: FDA-Public Use
  Company Number: US-GLAXOSMITHKLINE-US2018GSK188021

PATIENT
  Sex: Male

DRUGS (1)
  1. FLUTICASONE PROPIONATE INHALATION POWDER [Suspect]
     Active Substance: FLUTICASONE PROPIONATE
     Indication: PRODUCT USED FOR UNKNOWN INDICATION
     Dosage: 220MG
     Route: 055

REACTIONS (1)
  - Product substitution issue [Unknown]
